FAERS Safety Report 8469355-5 (Version None)
Quarter: 2012Q2

REPORT INFORMATION
  Report Type: 
  Country: None (occurrence: None)
  Receive Date: 20120626
  Receipt Date: 20120615
  Transmission Date: 20120825
  Serious: Yes (Hospitalization, Other)
  Sender: FDA-Public Use
  Company Number: JP-FRI-1000030485

PATIENT
  Sex: Male

DRUGS (10)
  1. LANSOPRAZOLE [Concomitant]
     Indication: GASTROOESOPHAGEAL REFLUX DISEASE
     Dosage: 15 MG
     Route: 048
     Dates: start: 20101209
  2. AVELOX [Concomitant]
     Indication: PNEUMONIA
     Dosage: 400 MG
     Route: 048
     Dates: start: 20120222, end: 20120223
  3. MEMANTINE HCL [Suspect]
     Dosage: 5 MG
     Route: 048
     Dates: start: 20120321, end: 20120407
  4. SARPOGRELATE [Concomitant]
     Indication: PERIPHERAL ARTERIAL OCCLUSIVE DISEASE
     Dosage: 200 MG
     Route: 048
     Dates: start: 20091219
  5. MEMANTINE HCL [Suspect]
     Dosage: 10 MG
     Route: 048
     Dates: start: 20120203, end: 20120320
  6. MEMANTINE HCL [Suspect]
     Indication: DEMENTIA ALZHEIMER'S TYPE
     Dosage: 5 MG
     Route: 048
     Dates: start: 20120119, end: 20120202
  7. DONEPEZIL HCL [Concomitant]
     Indication: DEMENTIA ALZHEIMER'S TYPE
     Dosage: 5 MG
     Route: 048
     Dates: start: 20090507
  8. KONSUBEN [Concomitant]
     Indication: CONSTIPATION
     Dosage: 5 MG
     Route: 048
     Dates: start: 20111119
  9. CADUET [Concomitant]
     Indication: HYPERTENSION
     Route: 048
     Dates: start: 20101109
  10. CADUET [Concomitant]
     Indication: HYPERCHOLESTEROLAEMIA

REACTIONS (2)
  - INAPPROPRIATE ANTIDIURETIC HORMONE SECRETION [None]
  - ALTERED STATE OF CONSCIOUSNESS [None]
